FAERS Safety Report 6361594-2 (Version None)
Quarter: 2009Q3

REPORT INFORMATION
  Report Type: 
  Country: None (occurrence: None)
  Receive Date: 20090918
  Receipt Date: 20090911
  Transmission Date: 20100115
  Serious: Yes (Other)
  Sender: FDA-Public Use
  Company Number: PHHY2009IT39093

PATIENT
  Sex: Female

DRUGS (3)
  1. RASILEZ [Suspect]
     Indication: HYPERTENSION
     Dosage: 150 MG DAILY
     Route: 048
     Dates: start: 20090629, end: 20090729
  2. KARIVA [Concomitant]
     Dosage: 300 MG
     Route: 048
     Dates: start: 20070101
  3. TRIATEC [Concomitant]
     Dosage: 10 MG
     Route: 048
     Dates: start: 20070101

REACTIONS (1)
  - RENAL FAILURE [None]
